FAERS Safety Report 11849507 (Version 1)
Quarter: 2015Q4

REPORT INFORMATION
  Report Type: Spontaneous
  Country: ES (occurrence: ES)
  Receive Date: 20151218
  Receipt Date: 20151218
  Transmission Date: 20160305
  Serious: Yes (Hospitalization)
  Sender: FDA-Public Use
  Company Number: ES-FRESENIUS KABI-FK201506624

PATIENT
  Sex: Female

DRUGS (2)
  1. BUPIVACAINE (MANUFACTURER UNKNOWN) [Suspect]
     Active Substance: BUPIVACAINE
     Indication: LABOUR PAIN
     Route: 042
  2. BUPIVACAINE (MANUFACTURER UNKNOWN) [Suspect]
     Active Substance: BUPIVACAINE
     Route: 008

REACTIONS (4)
  - Respiratory arrest [Recovered/Resolved]
  - Neurotoxicity [Recovered/Resolved]
  - Cyanosis [Recovered/Resolved]
  - Generalised tonic-clonic seizure [Recovered/Resolved]
